FAERS Safety Report 10398055 (Version 1)
Quarter: 2014Q3

REPORT INFORMATION
  Report Type: Spontaneous
  Country: ZA (occurrence: None)
  Receive Date: 20140818
  Receipt Date: 20140818
  Transmission Date: 20150326
  Serious: Yes (Hospitalization)
  Sender: FDA-Public Use
  Company Number: 2012ZA008217

PATIENT
  Age: 62 Year
  Sex: Female
  Weight: 73 kg

DRUGS (6)
  1. FLUOROURACIL. [Suspect]
     Active Substance: FLUOROURACIL
     Dates: start: 20111025
  2. LEVOFOLINATE CALCIUM [Suspect]
     Active Substance: LEUCOVORIN CALCIUM
     Dates: start: 20111025
  3. AVASTIN [Suspect]
     Active Substance: BEVACIZUMAB
     Dates: start: 20111125
  4. BETANOID /00008501/ [Suspect]
     Active Substance: BETAMETHASONE
     Dates: start: 20111025
  5. ONICIT [Suspect]
     Active Substance: PALONOSETRON HYDROCHLORIDE
     Dates: start: 20111025
  6. IRINOTECAN HCL [Suspect]
     Active Substance: IRINOTECAN HYDROCHLORIDE
     Dates: start: 20111025

REACTIONS (1)
  - Sepsis [None]
